FAERS Safety Report 4788056-8 (Version None)
Quarter: 2005Q4

REPORT INFORMATION
  Report Type: 
  Country: None (occurrence: None)
  Receive Date: 20051003
  Receipt Date: 20050920
  Transmission Date: 20060501
  Serious: Yes (Hospitalization)
  Sender: FDA-Public Use
  Company Number: ST-2005-008620

PATIENT
  Age: 80 Year
  Sex: Female

DRUGS (4)
  1. OLMETEC [Suspect]
     Indication: HYPERTENSION
     Dosage: 20 MG QD PO
     Route: 048
     Dates: start: 20050704
  2. BASEN [Suspect]
     Indication: DIABETES MELLITUS
     Dosage: 0.2 MG TID PO
     Route: 048
     Dates: start: 20040709
  3. NORVASC [Concomitant]
  4. DAONIL [Concomitant]

REACTIONS (1)
  - HYPOGLYCAEMIC COMA [None]
